FAERS Safety Report 24126696 (Version 1)
Quarter: 2024Q3

REPORT INFORMATION
  Report Type: Report from Study
  Country: US (occurrence: None)
  Receive Date: 20240723
  Receipt Date: 20240723
  Transmission Date: 20241017
  Serious: Yes (Other)
  Sender: ASTRAZENECA
  Company Number: 2020SE04433

PATIENT
  Sex: Female

DRUGS (1)
  1. CALQUENCE [Suspect]
     Active Substance: ACALABRUTINIB
     Indication: Chronic lymphocytic leukaemia
     Route: 048

REACTIONS (9)
  - Renal failure [Unknown]
  - Hypoglycaemia [Unknown]
  - Renal disorder [Unknown]
  - Hepatic function abnormal [Unknown]
  - Spleen disorder [Unknown]
  - Liver function test abnormal [Unknown]
  - White blood cell count abnormal [Unknown]
  - Blood iron decreased [Unknown]
  - Abdominal pain upper [Unknown]
